FAERS Safety Report 16247960 (Version 1)
Quarter: 2019Q2

REPORT INFORMATION
  Report Type: Spontaneous
  Country: US (occurrence: US)
  Receive Date: 20190428
  Receipt Date: 20190428
  Transmission Date: 20190711
  Serious: Yes (Hospitalization)
  Sender: FDA-Public Use
  Company Number: US-THE PROACTIV LLC-2066327

PATIENT
  Age: 18 Year
  Sex: Male

DRUGS (5)
  1. PROACTIV SOLUTION BLACKHEAD DISSOLVING [Suspect]
     Active Substance: SALICYLIC ACID
     Indication: PRODUCT USED FOR UNKNOWN INDICATION
     Route: 061
  2. PROACTIV MD ADAPALENE ACNE TREATMENT [Concomitant]
     Active Substance: ADAPALENE
     Route: 061
  3. PROACTIV GREEN TEA MOISTURIZER [Suspect]
     Active Substance: COSMETICS
     Route: 061
  4. PROACTIV DEEP CLEANSING WASH [Suspect]
     Active Substance: SALICYLIC ACID
     Route: 061
  5. PROACTIV MD DAILY OIL CONTROL SPF 30 [Concomitant]
     Active Substance: AVOBENZONE\OCTISALATE\OCTOCRYLENE
     Route: 061

REACTIONS (1)
  - Hypersensitivity [Unknown]
